FAERS Safety Report 22186763 (Version 2)
Quarter: 2023Q2

REPORT INFORMATION
  Report Type: Spontaneous
  Country: JP (occurrence: JP)
  Receive Date: 20230407
  Receipt Date: 20230501
  Transmission Date: 20230722
  Serious: Yes (Other)
  Sender: FDA-Public Use
  Company Number: JP-dspharma-2023SMP005245AA

PATIENT
  Age: 47 Year
  Sex: Female

DRUGS (16)
  1. LATUDA [Suspect]
     Active Substance: LURASIDONE HYDROCHLORIDE
     Indication: Schizophrenia
     Dosage: 80 MG, QD
     Route: 048
  2. BLONANSERIN [Suspect]
     Active Substance: BLONANSERIN
     Indication: Schizophrenia
     Dosage: UNK
     Route: 048
  3. BLONANSERIN [Suspect]
     Active Substance: BLONANSERIN
     Dosage: 16 MG, QD
     Route: 048
  4. HALOPERIDOL [Suspect]
     Active Substance: HALOPERIDOL
     Indication: Schizophrenia
     Dosage: 8 MG, QD
     Route: 048
  5. HALOPERIDOL [Suspect]
     Active Substance: HALOPERIDOL
     Dosage: 6 MG, QD
     Route: 048
  6. AKINETON [Suspect]
     Active Substance: BIPERIDEN HYDROCHLORIDE
     Indication: Product used for unknown indication
     Dosage: 8 MG, QD
     Route: 065
  7. AKINETON [Suspect]
     Active Substance: BIPERIDEN HYDROCHLORIDE
     Dosage: 6 MG, QD
     Route: 065
  8. AKINETON [Suspect]
     Active Substance: BIPERIDEN HYDROCHLORIDE
     Dosage: 4 MG, QD
     Route: 065
  9. INVEGA [Suspect]
     Active Substance: PALIPERIDONE
     Indication: Schizophrenia
     Dosage: UNK
     Route: 048
  10. INVEGA [Suspect]
     Active Substance: PALIPERIDONE
     Dosage: 12 MG, QD
     Route: 048
  11. OLANZAPINE [Suspect]
     Active Substance: OLANZAPINE
     Indication: Schizophrenia
     Dosage: UNK
     Route: 065
  12. OLANZAPINE [Suspect]
     Active Substance: OLANZAPINE
     Dosage: 15 MG, QD
     Route: 065
  13. ASENAPINE MALEATE [Suspect]
     Active Substance: ASENAPINE MALEATE
     Indication: Schizophrenia
     Dosage: 20 MG, QD
     Route: 060
  14. BROMPERIDOL [Suspect]
     Active Substance: BROMPERIDOL
     Indication: Schizophrenia
     Dosage: 6 MG, QD
     Route: 048
  15. BROMPERIDOL [Suspect]
     Active Substance: BROMPERIDOL
     Dosage: 3 MG, QD
     Route: 048
  16. ARIPIPRAZOLE [Concomitant]
     Active Substance: ARIPIPRAZOLE
     Indication: Schizophrenia
     Dosage: 18 MG, QD
     Route: 065

REACTIONS (7)
  - Hallucination, auditory [Unknown]
  - Malaise [Unknown]
  - Hyperprolactinaemia [Unknown]
  - Weight increased [Unknown]
  - Hypoaesthesia oral [Unknown]
  - Thirst [Unknown]
  - Tremor [Unknown]
